FAERS Safety Report 19000204 (Version 1)
Quarter: 2021Q1

REPORT INFORMATION
  Report Type: Report from Study
  Country: US (occurrence: US)
  Receive Date: 20210312
  Receipt Date: 20210312
  Transmission Date: 20210420
  Serious: Yes (Other)
  Sender: FDA-Public Use
  Company Number: US-UCBSA-2021008033

PATIENT
  Age: 26 Year
  Sex: Female

DRUGS (2)
  1. LEVETIRACETAM. [Suspect]
     Active Substance: LEVETIRACETAM
     Dosage: DOSE CHANGE (INCREASED DOSE)
  2. LEVETIRACETAM. [Suspect]
     Active Substance: LEVETIRACETAM
     Indication: EPILEPSY
     Dosage: INITIAL DOSE

REACTIONS (9)
  - Thinking abnormal [Unknown]
  - Pain [Unknown]
  - Staring [Unknown]
  - Nausea [Unknown]
  - Parosmia [Unknown]
  - Epilepsy [Unknown]
  - Dizziness [Unknown]
  - Stress [Unknown]
  - Photopsia [Unknown]
